FAERS Safety Report 9457541 (Version 1)
Quarter: 2013Q3

REPORT INFORMATION
  Report Type: Spontaneous
  Country: GB (occurrence: None)
  Receive Date: 20130812
  Receipt Date: 20130812
  Transmission Date: 20140515
  Serious: Yes (Hospitalization)
  Sender: FDA-Public Use
  Company Number: AG-2012-2141

PATIENT
  Age: 83 Year
  Sex: Male
  Weight: 61.5 kg

DRUGS (3)
  1. CHLORAMBUCIL [Suspect]
     Indication: CHRONIC LYMPHOCYTIC LEUKAEMIA
     Dosage: (10 MG/M2,DAYS 1-7),ORAL
     Route: 048
     Dates: start: 20101117
  2. OFATUMUMAB [Suspect]
     Indication: CHRONIC LYMPHOCYTIC LEUKAEMIA
     Dosage: 300 MILLIGRAM (300 MILLIGRAM,DAY 1),INTRAVENOUS (NOT OTHERWISE SPECIFIED)
     Route: 042
  3. CLEXANE [Concomitant]

REACTIONS (4)
  - Chest pain [None]
  - Eructation [None]
  - Vomiting [None]
  - Throat tightness [None]
